FAERS Safety Report 12860854 (Version 2)
Quarter: 2016Q4

REPORT INFORMATION
  Report Type: Spontaneous
  Country: FR (occurrence: FR)
  Receive Date: 20161019
  Receipt Date: 20161213
  Transmission Date: 20170207
  Serious: Yes (Hospitalization, Other)
  Sender: FDA-Public Use
  Company Number: FR-ACCORD-044928

PATIENT
  Age: 52 Year
  Sex: Female

DRUGS (11)
  1. SKENAN [Suspect]
     Active Substance: MORPHINE SULFATE
     Indication: CANCER PAIN
     Route: 048
     Dates: start: 20160628, end: 20160907
  2. METHYLPREDNISOLONE MYLAN [Concomitant]
     Active Substance: METHYLPREDNISOLONE
     Indication: PREMEDICATION
     Route: 042
  3. CISPLATINE ACCORD [Suspect]
     Active Substance: CISPLATIN
     Indication: TONSIL CANCER
     Dosage: 100 MG/M2 EVERY TWENTY?ONE DAYS (133 MG PER COURSE)
     Route: 042
     Dates: start: 20160831, end: 20160831
  4. LYRICA [Suspect]
     Active Substance: PREGABALIN
     Indication: NEURALGIA
     Dosage: ALSO RECEIVED 50 MG IN THE EVENING THE FIRST THREE DAYS
     Route: 048
     Dates: start: 20160831, end: 20160907
  5. ULTRA LEVURE [Concomitant]
     Active Substance: SACCHAROMYCES CEREVISIAE
  6. DOLIPRANE [Concomitant]
     Active Substance: ACETAMINOPHEN
  7. MORPHINE [Concomitant]
     Active Substance: MORPHINE
     Indication: CANCER PAIN
  8. PRAZEPAM [Concomitant]
     Active Substance: PRAZEPAM
  9. PLAQUENIL [Concomitant]
     Active Substance: HYDROXYCHLOROQUINE SULFATE
  10. ONDANSETRON ACCORD [Concomitant]
     Active Substance: ONDANSETRON
     Indication: PREMEDICATION
     Route: 042
  11. PECFENT [Concomitant]
     Active Substance: FENTANYL CITRATE

REACTIONS (2)
  - Hepatitis [Recovered/Resolved]
  - Lung infection [Recovered/Resolved]

NARRATIVE: CASE EVENT DATE: 20160906
